FAERS Safety Report 4996297-X (Version None)
Quarter: 2006Q2

REPORT INFORMATION
  Report Type: 
  Country: None (occurrence: None)
  Receive Date: 20060509
  Receipt Date: 20060426
  Transmission Date: 20061013
  Serious: Yes (Hospitalization)
  Sender: FDA-Public Use
  Company Number: FR-BOEHRINGER INGELHEIM PHARMACEUTICALS, INC.-2006-BP-05137YA

PATIENT
  Age: 84 Year
  Sex: Male

DRUGS (3)
  1. OMIX (TAMSULOSIN HYDROCHLORIDE) [Suspect]
     Route: 048
     Dates: start: 20030615, end: 20060315
  2. MONICOR LP [Suspect]
     Route: 048
     Dates: start: 20030615, end: 20060315
  3. TELFAST [Suspect]
     Indication: PRURITUS
     Route: 048
     Dates: start: 20060305, end: 20060315

REACTIONS (6)
  - AGRANULOCYTOSIS [None]
  - DRUG TOXICITY [None]
  - HERPES VIRUS INFECTION [None]
  - LYMPHOMA [None]
  - MUCOSAL INFLAMMATION [None]
  - PRURITUS [None]
